FAERS Safety Report 17742421 (Version 2)
Quarter: 2023Q4

REPORT INFORMATION
  Report Type: Spontaneous
  Country: US (occurrence: US)
  Receive Date: 20200505
  Receipt Date: 20231202
  Transmission Date: 20240109
  Serious: No
  Sender: FDA-Public Use
  Company Number: US-BAYER-2020-074424

PATIENT
  Age: 85 Year
  Sex: Female

DRUGS (1)
  1. MIRALAX [Suspect]
     Active Substance: POLYETHYLENE GLYCOL 3350
     Indication: Gastrointestinal disorder
     Dosage: A CAP FULL DOSE
     Route: 048
     Dates: end: 20200430

REACTIONS (1)
  - Extra dose administered [Unknown]
